FAERS Safety Report 8020476-0 (Version None)
Quarter: 2012Q1

REPORT INFORMATION
  Report Type: 
  Country: None (occurrence: None)
  Receive Date: 20120103
  Receipt Date: 20111228
  Transmission Date: 20120608
  Serious: Yes (Other)
  Sender: FDA-Public Use
  Company Number: CN-PFIZER INC-2011314485

PATIENT
  Sex: Male

DRUGS (1)
  1. GLUCOTROL XL [Suspect]
     Dosage: 5MG/TIME, ONCE A DAY
     Route: 048
     Dates: start: 20111224, end: 20111201

REACTIONS (1)
  - FAECES DISCOLOURED [None]
